FAERS Safety Report 4786011-5 (Version None)
Quarter: 2005Q3

REPORT INFORMATION
  Report Type: 
  Country: None (occurrence: None)
  Receive Date: 20050930
  Receipt Date: 20050921
  Transmission Date: 20060218
  Serious: Yes (Hospitalization)
  Sender: FDA-Public Use
  Company Number: 2005-07-1945

PATIENT
  Age: 76 Year
  Sex: Female

DRUGS (8)
  1. VIRAFERONPEG [Suspect]
     Indication: HEPATITIS C
     Dosage: 0.45 ML QW
  2. REBETOL [Suspect]
     Indication: HEPATITIS C
     Dosage: 800 MG QD
     Dates: start: 20050705, end: 20050701
  3. MANTADIX [Concomitant]
  4. FUROSEMIDE [Concomitant]
  5. COVERSYL [Concomitant]
  6. FLECAINIDE ACETATE [Concomitant]
  7. KALEORID [Concomitant]
  8. SERETIDE (SALMETEROL XINAFOATE/FLUTICASONE PROPIONATE) [Concomitant]

REACTIONS (23)
  - ACUTE RESPIRATORY DISTRESS SYNDROME [None]
  - ANAESTHETIC COMPLICATION NEUROLOGICAL [None]
  - BLOOD GASES ABNORMAL [None]
  - BRAIN NATRIURETIC PEPTIDE INCREASED [None]
  - CARDIAC FAILURE [None]
  - DEPENDENCE ON RESPIRATOR [None]
  - ERYTHEMA [None]
  - ESCHERICHIA URINARY TRACT INFECTION [None]
  - FATIGUE [None]
  - HEPATIC CIRRHOSIS [None]
  - HEPATOJUGULAR REFLUX [None]
  - HEPATOMEGALY [None]
  - HYPOXIA [None]
  - LUNG DISORDER [None]
  - MITRAL VALVE DISEASE [None]
  - MITRAL VALVE INCOMPETENCE [None]
  - NEUROMYOPATHY [None]
  - PNEUMONIA STAPHYLOCOCCAL [None]
  - PULMONARY HYPERTENSION [None]
  - RASH [None]
  - RIGHT VENTRICULAR FAILURE [None]
  - SUPERIOR VENA CAVAL OCCLUSION [None]
  - TACHYARRHYTHMIA [None]
